FAERS Safety Report 8490520-5 (Version None)
Quarter: 2012Q3

REPORT INFORMATION
  Report Type: 
  Country: None (occurrence: None)
  Receive Date: 20120705
  Receipt Date: 20120625
  Transmission Date: 20120928
  Serious: Yes (Life-Threatening, Hospitalization)
  Sender: FDA-Public Use
  Company Number: PT-TEVA-345401ISR

PATIENT
  Age: 37 Year
  Sex: Female

DRUGS (6)
  1. VALPROATE SODIUM [Interacting]
     Indication: BIPOLAR I DISORDER
     Dosage: 500 MILLIGRAM; THEN INCREASED TO 500MG TWICE/DAY 3D LATER
     Route: 065
  2. IBUPROFEN [Concomitant]
     Indication: BIPOLAR I DISORDER
     Dosage: 8 MILLIGRAM;
     Route: 065
  3. VALPROATE SODIUM [Interacting]
     Dosage: 1000 MILLIGRAM;
     Route: 065
  4. LORAZEPAM [Concomitant]
     Indication: BIPOLAR I DISORDER
     Dosage: 1MG ONCE/DAY PLUS 2.5MG BEFORE BEDTIME
     Route: 065
  5. RISPERIDONE [Suspect]
     Indication: BIPOLAR I DISORDER
     Dosage: 3 MILLIGRAM;
     Route: 065
  6. TRAZODONE HCL [Concomitant]
     Indication: BIPOLAR I DISORDER
     Dosage: 100 MILLIGRAM;
     Route: 065

REACTIONS (2)
  - DRUG INTERACTION [None]
  - HYPERAMMONAEMIC ENCEPHALOPATHY [None]
